FAERS Safety Report 9737039 (Version 3)
Quarter: 2014Q2

REPORT INFORMATION
  Report Type: Spontaneous
  Country: JP (occurrence: JP)
  Receive Date: 20131206
  Receipt Date: 20140606
  Transmission Date: 20141212
  Serious: Yes (Life-Threatening, Hospitalization)
  Sender: FDA-Public Use
  Company Number: JP-SA-2013SA124731

PATIENT
  Age: 36 Month
  Sex: Female
  Weight: 13.55 kg

DRUGS (21)
  1. FLUDARA [Suspect]
     Indication: BONE MARROW CONDITIONING REGIMEN
     Route: 065
     Dates: start: 20120217, end: 20120221
  2. THYMOGLOBULINE [Suspect]
     Indication: BONE MARROW CONDITIONING REGIMEN
     Route: 042
     Dates: start: 20120220, end: 20120220
  3. BUSULFEX [Suspect]
     Indication: BONE MARROW CONDITIONING REGIMEN
     Route: 065
     Dates: start: 20120214, end: 20120216
  4. ALKERAN [Suspect]
     Indication: BONE MARROW CONDITIONING REGIMEN
     Route: 065
     Dates: start: 20120216, end: 20120217
  5. HYDROCORTONE [Concomitant]
     Indication: PROPHYLAXIS
     Dates: start: 20120220, end: 20120220
  6. SULBACILLIN [Concomitant]
     Indication: INFECTION PROPHYLAXIS
     Dates: start: 20120214, end: 20120302
  7. FRAGMIN [Concomitant]
     Indication: PROPHYLAXIS
     Dates: start: 20120214, end: 20120324
  8. ONDASETRON [Concomitant]
     Indication: PROPHYLAXIS OF NAUSEA AND VOMITING
     Dates: start: 20120214, end: 20120224
  9. LASIX [Concomitant]
     Indication: OLIGURIA
     Dates: start: 20120220, end: 20120327
  10. VICCLOX [Concomitant]
     Indication: ANTIVIRAL PROPHYLAXIS
     Dates: start: 20120216, end: 20120329
  11. SANDIMMUNE [Concomitant]
     Indication: PROPHYLAXIS AGAINST GRAFT VERSUS HOST DISEASE
     Dates: start: 20120222, end: 20120322
  12. METHOTREXATE [Concomitant]
     Indication: PROPHYLAXIS AGAINST GRAFT VERSUS HOST DISEASE
     Dates: start: 20120224, end: 20120305
  13. NEU-UP [Concomitant]
     Indication: NEUTROPENIA
     Dates: start: 20120228, end: 20120319
  14. PROGRAF [Concomitant]
     Indication: PROPHYLAXIS AGAINST GRAFT VERSUS HOST DISEASE
     Dates: start: 20120424, end: 20120820
  15. PREDNISOLONE [Concomitant]
     Indication: ACUTE GRAFT VERSUS HOST DISEASE
     Dates: start: 20120424, end: 20120429
  16. BAKTAR [Concomitant]
     Indication: ANTIFUNGAL PROPHYLAXIS
     Dates: start: 20120324, end: 20120820
  17. ITRIZOLE [Concomitant]
     Indication: ANTIFUNGAL PROPHYLAXIS
     Dates: end: 20120305
  18. ITRIZOLE [Concomitant]
     Indication: BRONCHOPULMONARY ASPERGILLOSIS
     Dates: end: 20120305
  19. POLYMYXIN B [Concomitant]
     Indication: PROPHYLAXIS
     Dates: start: 20120307, end: 20120312
  20. CALONAL [Concomitant]
     Indication: PROPHYLAXIS
     Dates: start: 20120220, end: 20120221
  21. VENOGLOBULIN-IH [Concomitant]
     Indication: ANTIVIRAL PROPHYLAXIS
     Dates: start: 20120223, end: 20120531

REACTIONS (4)
  - Febrile neutropenia [Recovering/Resolving]
  - Herpes zoster [Recovered/Resolved]
  - Skin infection [Recovering/Resolving]
  - Stomatitis [Recovering/Resolving]
